FAERS Safety Report 20278925 (Version 1)
Quarter: 2022Q1

REPORT INFORMATION
  Report Type: Spontaneous
  Country: DE (occurrence: DE)
  Receive Date: 20220103
  Receipt Date: 20220103
  Transmission Date: 20220423
  Serious: Yes (Congenital Anomaly)
  Sender: FDA-Public Use
  Company Number: DE-NOVARTISPH-NVSC2021DE297637

PATIENT
  Age: 1 Day
  Sex: Female
  Weight: 2.94 kg

DRUGS (5)
  1. OXCARBAZEPINE [Suspect]
     Active Substance: OXCARBAZEPINE
     Indication: Foetal exposure during pregnancy
     Dosage: MATERNAL DOSE 1800 [MG/D (300-300-300-300-600) ]
     Route: 064
     Dates: start: 20200729, end: 20210406
  2. FOLIC ACID [Concomitant]
     Active Substance: FOLIC ACID
     Indication: Foetal exposure during pregnancy
     Dosage: 5 MG, QD (5 MG/D)
     Route: 064
     Dates: start: 20200729, end: 20210421
  3. ENOXAPARIN [Concomitant]
     Active Substance: ENOXAPARIN
     Indication: Foetal exposure during pregnancy
     Dosage: 40 MG, QD (40 MG/D)
     Route: 064
  4. LEVEMIR [Concomitant]
     Active Substance: INSULIN DETEMIR
     Indication: Foetal exposure during pregnancy
     Dosage: UNKNOWN
     Route: 064
     Dates: start: 20201201, end: 20210421
  5. BOOSTRIX [Concomitant]
     Active Substance: TETANUS TOXOID, REDUCED DIPHTHERIA TOXOID AND ACELLULAR PERTUSSIS VACCINE, ADSORBED ANTIGENS
     Indication: Foetal exposure during pregnancy
     Dosage: UNKNOWN
     Route: 064
     Dates: start: 20210310, end: 20210310

REACTIONS (3)
  - Atrial septal defect [Unknown]
  - Atrial septal defect [Unknown]
  - Foetal exposure during pregnancy [Unknown]

NARRATIVE: CASE EVENT DATE: 20210421
